FAERS Safety Report 4841252-3 (Version None)
Quarter: 2005Q4

REPORT INFORMATION
  Report Type: 
  Country: None (occurrence: None)
  Receive Date: 20051130
  Receipt Date: 20051125
  Transmission Date: 20060501
  Serious: Yes (Life-Threatening, Hospitalization)
  Sender: FDA-Public Use
  Company Number: PHBS2005YU17442

PATIENT
  Age: 21 Year
  Sex: Male
  Weight: 80 kg

DRUGS (1)
  1. LEPONEX [Suspect]
     Indication: SCHIZOPHRENIA
     Dosage: 100 MG/DAY
     Route: 048
     Dates: start: 20050912, end: 20051025

REACTIONS (4)
  - AGRANULOCYTOSIS [None]
  - APHTHOUS STOMATITIS [None]
  - ORAL MUCOSAL DISORDER [None]
  - PYREXIA [None]
